FAERS Safety Report 24084971 (Version 1)
Quarter: 2024Q3

REPORT INFORMATION
  Report Type: Spontaneous
  Country: JP (occurrence: JP)
  Receive Date: 20240712
  Receipt Date: 20240712
  Transmission Date: 20241017
  Serious: Yes (Hospitalization, Other)
  Sender: PIERRE FABRE MEDICAMENT
  Company Number: JP-PFM-2021-11792

PATIENT
  Age: 0 Year
  Sex: Male
  Weight: 6 kg

DRUGS (9)
  1. PROPRANOLOL HYDROCHLORIDE [Suspect]
     Active Substance: PROPRANOLOL HYDROCHLORIDE
     Indication: Product used for unknown indication
     Dosage: 0.5 MG/KG/DAY (0.25 MG/KG/12 HOURS)
     Route: 048
     Dates: start: 20211122, end: 20211122
  2. PROPRANOLOL HYDROCHLORIDE [Suspect]
     Active Substance: PROPRANOLOL HYDROCHLORIDE
     Dosage: 1 MG/KG/DAY (0.5 MG/KG/12 HOURS)
     Route: 048
     Dates: start: 20211123, end: 20211124
  3. PROPRANOLOL HYDROCHLORIDE [Suspect]
     Active Substance: PROPRANOLOL HYDROCHLORIDE
     Dosage: 2 MG/KG/DAY (1 MG/KG/12 HOURS)
     Route: 048
     Dates: start: 20211125, end: 20211125
  4. PROPRANOLOL HYDROCHLORIDE [Suspect]
     Active Substance: PROPRANOLOL HYDROCHLORIDE
     Dosage: 1 MG/KG/DAY
     Route: 048
     Dates: start: 20211126, end: 20211128
  5. PROPRANOLOL HYDROCHLORIDE [Suspect]
     Active Substance: PROPRANOLOL HYDROCHLORIDE
     Dosage: 2 MG/KG/DAY (1 MG/KG/12 HOURS)
     Route: 048
     Dates: start: 20211129
  6. D Chlorpheniramine Maleate [Concomitant]
     Indication: Pruritus
     Dosage: 3 MG, UNK
     Route: 048
     Dates: start: 20211124, end: 20211201
  7. SODIUM SELENITE [Concomitant]
     Active Substance: SODIUM SELENITE
     Indication: Selenium deficiency
     Dosage: 30 ?G
     Route: 041
     Dates: start: 20211124, end: 20211201
  8. PETROLATUM [Concomitant]
     Active Substance: PETROLATUM
     Indication: Dermatitis atopic
     Dosage: UNK
     Route: 061
     Dates: start: 20211115
  9. PENTOSAN POLYSULFATE SODIUM [Concomitant]
     Active Substance: PENTOSAN POLYSULFATE SODIUM
     Indication: Dermatitis atopic
     Dosage: UNK
     Route: 061
     Dates: start: 20211115

REACTIONS (4)
  - Hypoglycaemia [Recovered/Resolved]
  - Bradycardia [Recovered/Resolved]
  - Drug titration error [Unknown]
  - Off label use [Unknown]

NARRATIVE: CASE EVENT DATE: 20211126
